FAERS Safety Report 5715916-3 (Version None)
Quarter: 2008Q2

REPORT INFORMATION
  Report Type: 
  Country: None (occurrence: None)
  Receive Date: 20080424
  Receipt Date: 20070302
  Transmission Date: 20081010
  Serious: Yes (Death, Hospitalization)
  Sender: FDA-Public Use
  Company Number: ES-ROCHE-411135

PATIENT
  Sex: Female
  Weight: 79 kg

DRUGS (8)
  1. CAPECITABINE [Suspect]
     Dosage: PERMANENTLY DISCONTINUED ON 08 JUL 2005.
     Route: 048
     Dates: start: 20050318, end: 20050617
  2. BEVACIZUMAB [Suspect]
     Dosage: GIVEN OVER FOUR HOURS. 7.5 MG/KG EVERY THREE WEEKS. PERMANENTLY DISCONTINUED ON 08 JUL 2005.
     Route: 042
     Dates: start: 20050318, end: 20050617
  3. OXALIPLATINO [Suspect]
     Dosage: GIVEN OVER TWO HOURS. PERMANENTLY DISCONTINUED ON 08 JUL 2005.
     Route: 042
     Dates: start: 20050318, end: 20050617
  4. ONDANSETRON [Concomitant]
     Dates: start: 20050318, end: 20050617
  5. DEXAMETHASONE TAB [Concomitant]
     Dates: start: 20050318, end: 20050617
  6. OMEPRAZOLE [Concomitant]
     Dates: start: 20050318, end: 20050617
  7. MAGNESIUM SULFATE [Concomitant]
     Dates: start: 20050318, end: 20050617
  8. CALCIUM GLUBIONATE [Concomitant]
     Dates: start: 20050318, end: 20050617

REACTIONS (2)
  - COLORECTAL CANCER METASTATIC [None]
  - DEATH [None]
